APPROVED DRUG PRODUCT: ZIOPTAN
Active Ingredient: TAFLUPROST
Strength: 0.0015%
Dosage Form/Route: SOLUTION/DROPS;OPHTHALMIC
Application: N202514 | Product #001 | TE Code: AT
Applicant: THEA PHARMA INC
Approved: Feb 10, 2012 | RLD: Yes | RS: Yes | Type: RX

PATENTS:
Patent 10864159 | Expires: May 28, 2029
Patent 9999593 | Expires: May 28, 2029